FAERS Safety Report 7327920-2 (Version None)
Quarter: 2011Q1

REPORT INFORMATION
  Report Type: 
  Country: None (occurrence: None)
  Receive Date: 20110222
  Receipt Date: 20110207
  Transmission Date: 20110831
  Serious: Yes (Death, Hospitalization)
  Sender: FDA-Public Use
  Company Number: AE 2011-046

PATIENT
  Age: 55 Year
  Sex: Male

DRUGS (2)
  1. FAZACLO ODT [Suspect]
     Indication: SCHIZOPHRENIA
     Dosage: 200-700 MG DAILY, PO
     Route: 048
     Dates: start: 20100604
  2. IVEGA [Concomitant]

REACTIONS (1)
  - RESPIRATORY FAILURE [None]
